FAERS Safety Report 17023093 (Version 2)
Quarter: 2019Q4

REPORT INFORMATION
  Report Type: Spontaneous
  Country: US (occurrence: US)
  Receive Date: 20191112
  Receipt Date: 20191203
  Transmission Date: 20200122
  Serious: No
  Sender: FDA-Public Use
  Company Number: US-VIFOR (INTERNATIONAL) INC.-VIT-2019-10977

PATIENT
  Age: 63 Year
  Sex: Female

DRUGS (12)
  1. VELTASSA [Suspect]
     Active Substance: PATIROMER
     Indication: HYPERKALAEMIA
     Route: 048
     Dates: start: 20191015, end: 201910
  2. CLONIDINE. [Concomitant]
     Active Substance: CLONIDINE
     Dates: start: 20191014
  3. METFORMIN [Concomitant]
     Active Substance: METFORMIN HYDROCHLORIDE
     Dates: start: 20191014
  4. ALLOPURINOL. [Concomitant]
     Active Substance: ALLOPURINOL
     Dates: start: 20191014
  5. LANTUS SOLO [Concomitant]
     Dates: start: 20191014
  6. COZAAR [Concomitant]
     Active Substance: LOSARTAN POTASSIUM
     Dates: start: 20191014
  7. FUROSEMIDE. [Concomitant]
     Active Substance: FUROSEMIDE
     Dates: start: 20191014
  8. DETROL [Concomitant]
     Active Substance: TOLTERODINE TARTRATE
     Dates: start: 20191014
  9. ACARBOSE. [Concomitant]
     Active Substance: ACARBOSE
     Dates: start: 20191014
  10. EFFEXOR [Concomitant]
     Active Substance: VENLAFAXINE HYDROCHLORIDE
     Dates: start: 20191014
  11. MONTELUKAST [Concomitant]
     Active Substance: MONTELUKAST SODIUM
     Dates: start: 20191014
  12. PROCARDIA [Concomitant]
     Active Substance: NIFEDIPINE
     Dates: start: 20191014

REACTIONS (2)
  - Constipation [Recovered/Resolved]
  - Adverse drug reaction [Unknown]

NARRATIVE: CASE EVENT DATE: 201910
